FAERS Safety Report 6374082-4 (Version None)
Quarter: 2009Q3

REPORT INFORMATION
  Report Type: 
  Country: None (occurrence: None)
  Receive Date: 20090924
  Receipt Date: 20090629
  Transmission Date: 20100115
  Serious: No
  Sender: FDA-Public Use
  Company Number: US-ASTRAZENECA-2009UW18143

PATIENT
  Sex: Male
  Weight: 74.4 kg

DRUGS (9)
  1. SEROQUEL [Suspect]
     Route: 048
  2. GEODON [Concomitant]
  3. KEPPRA [Concomitant]
  4. METFORMIN HCL [Concomitant]
  5. NEXIUM [Concomitant]
  6. TOPROL-XL [Concomitant]
  7. CRESTOR [Concomitant]
  8. AMLODIPINE BESYLATE [Concomitant]
  9. CELEBREX [Concomitant]

REACTIONS (7)
  - BACK PAIN [None]
  - CONSTIPATION [None]
  - DRY MOUTH [None]
  - INSOMNIA [None]
  - MEMORY IMPAIRMENT [None]
  - MOOD SWINGS [None]
  - POLYDIPSIA [None]
